FAERS Safety Report 14836672 (Version 1)
Quarter: 2018Q2

REPORT INFORMATION
  Report Type: Spontaneous
  Country: US (occurrence: US)
  Receive Date: 20180416
  Receipt Date: 20180416
  Transmission Date: 20180711
  Serious: No
  Sender: FDA-Public Use
  Company Number: None

PATIENT
  Age: 41 Year
  Sex: Female
  Weight: 60.75 kg

DRUGS (3)
  1. QUETIAPINE FUMARATE 25MG [Suspect]
     Active Substance: QUETIAPINE FUMARATE
     Indication: SLEEP DISORDER
     Dosage: ?          QUANTITY:.5 TABLET(S);?
     Route: 048
     Dates: start: 20180413, end: 20180414
  2. VITAMIN D [Concomitant]
     Active Substance: CHOLECALCIFEROL
  3. ADERALL [Concomitant]

REACTIONS (2)
  - Tremor [None]
  - Cognitive disorder [None]

NARRATIVE: CASE EVENT DATE: 20180414
